FAERS Safety Report 5054450-3 (Version None)
Quarter: 2006Q3

REPORT INFORMATION
  Report Type: 
  Country: None (occurrence: None)
  Receive Date: 20060713
  Receipt Date: 20060706
  Transmission Date: 20061208
  Serious: Yes (Hospitalization)
  Sender: FDA-Public Use
  Company Number: 2006AL001677

PATIENT
  Age: 61 Year
  Sex: Male

DRUGS (6)
  1. ETODOLAC [Suspect]
     Indication: ROTATOR CUFF SYNDROME
     Dosage: 400 MG; BID; PO
     Route: 048
     Dates: start: 20060623, end: 20060701
  2. LIPITOR [Concomitant]
  3. VALSARTAN [Concomitant]
  4. NEXIUM [Concomitant]
  5. ZINC [Concomitant]
  6. SAW PALMETTO [Concomitant]

REACTIONS (5)
  - ABDOMINAL PAIN UPPER [None]
  - CHEST PAIN [None]
  - DYSPEPSIA [None]
  - HYPERHIDROSIS [None]
  - OESOPHAGEAL SPASM [None]
